FAERS Safety Report 17856874 (Version 2)
Quarter: 2020Q3

REPORT INFORMATION
  Report Type: Spontaneous
  Country: CN (occurrence: CN)
  Receive Date: 20200603
  Receipt Date: 20200701
  Transmission Date: 20201103
  Serious: Yes (Hospitalization, Other)
  Sender: FDA-Public Use
  Company Number: CN-PFIZER INC-2020213251

PATIENT
  Age: 49 Year
  Sex: Female
  Weight: 54 kg

DRUGS (4)
  1. RITUXIMAB. [Concomitant]
     Active Substance: RITUXIMAB
     Indication: NEOPLASM
     Dosage: 100 MG, 1X/DAY
     Route: 041
     Dates: start: 20200326, end: 20200327
  2. PHARMORUBICIN [Suspect]
     Active Substance: EPIRUBICIN
     Indication: NEOPLASM
     Dosage: 90 MG, 2X/DAY
     Route: 041
     Dates: start: 20200326, end: 20200326
  3. GAI NUO [Suspect]
     Active Substance: VINORELBINE TARTRATE
     Indication: NEOPLASM
     Dosage: 30 MG, 1X/DAY
     Route: 041
     Dates: start: 20200326, end: 20200326
  4. CYCLOPHOSPHAMIDE. [Suspect]
     Active Substance: CYCLOPHOSPHAMIDE
     Indication: NEOPLASM
     Dosage: 1100 MG, 2X/DAY
     Route: 041
     Dates: start: 20200326, end: 20200326

REACTIONS (3)
  - Granulocyte count decreased [Recovering/Resolving]
  - Infection [Recovering/Resolving]
  - Drug-induced liver injury [Recovering/Resolving]

NARRATIVE: CASE EVENT DATE: 20200403
